FAERS Safety Report 19360700 (Version 1)
Quarter: 2021Q2

REPORT INFORMATION
  Report Type: Report from Study
  Country: None (occurrence: US)
  Receive Date: 20210602
  Receipt Date: 20210602
  Transmission Date: 20210717
  Serious: No
  Sender: FDA-Public Use
  Company Number: US-MDD US OPERATIONS-MDD202102-000220

PATIENT
  Age: 88 Year
  Sex: Male

DRUGS (1)
  1. APOKYN [Suspect]
     Active Substance: APOMORPHINE HYDROCHLORIDE
     Indication: PARKINSON^S DISEASE
     Dosage: 0.1 ML AS STARTER DOSE TITRATE BY 0.1 ML EVERY FEW DAYS UP TO 0.6 ML
     Route: 058

REACTIONS (4)
  - Somnolence [Unknown]
  - Loss of consciousness [Unknown]
  - Vision blurred [Unknown]
  - Fall [Unknown]
